FAERS Safety Report 7201573-6 (Version None)
Quarter: 2010Q4

REPORT INFORMATION
  Report Type: 
  Country: None (occurrence: None)
  Receive Date: 20101229
  Receipt Date: 20100924
  Transmission Date: 20110411
  Serious: No
  Sender: FDA-Public Use
  Company Number: US-MYLANLABS-2010S1017769

PATIENT
  Age: 23 Year
  Sex: Female

DRUGS (3)
  1. RISPERIDONE [Suspect]
     Indication: SCHIZOAFFECTIVE DISORDER
     Route: 048
     Dates: start: 20090901
  2. LEVOTHROID [Concomitant]
     Route: 048
  3. ZITHROMAX [Concomitant]
     Indication: MALAISE
     Dosage: ZPAK

REACTIONS (1)
  - DYSKINESIA [None]
